FAERS Safety Report 4834444-0 (Version None)
Quarter: 2005Q4

REPORT INFORMATION
  Report Type: 
  Country: None (occurrence: None)
  Receive Date: 20051122
  Receipt Date: 20041103
  Transmission Date: 20060501
  Serious: No
  Sender: FDA-Public Use
  Company Number: US-BRISTOL-MYERS SQUIBB COMPANY-12754743

PATIENT

DRUGS (2)
  1. PRAVACHOL [Suspect]
  2. LEXAPRO [Interacting]
     Route: 048

REACTIONS (2)
  - DRUG INTERACTION [None]
  - SUICIDAL IDEATION [None]
